FAERS Safety Report 9504443 (Version 2)
Quarter: 2013Q3

REPORT INFORMATION
  Report Type: Spontaneous
  Country: CH (occurrence: CH)
  Receive Date: 20130906
  Receipt Date: 20130906
  Transmission Date: 20140515
  Serious: Yes (Other)
  Sender: FDA-Public Use
  Company Number: CH-PFIZER INC-2013029204

PATIENT
  Sex: Male

DRUGS (3)
  1. XANAX [Suspect]
     Dosage: UNK
     Route: 064
  2. METHADONE [Suspect]
     Indication: DRUG DEPENDENCE
     Dosage: 26 MG, 1X/DAY
     Route: 064
  3. CIPRALEX [Suspect]
     Indication: DEPRESSION
     Dosage: 10 MG, 1X/DAY
     Route: 064
     Dates: end: 20121210

REACTIONS (3)
  - Maternal exposure timing unspecified [Unknown]
  - Premature baby [Recovered/Resolved]
  - Drug withdrawal syndrome neonatal [Recovered/Resolved]
